FAERS Safety Report 4629137-9 (Version None)
Quarter: 2005Q2

REPORT INFORMATION
  Report Type: 
  Country: None (occurrence: None)
  Receive Date: 20050407
  Receipt Date: 20050330
  Transmission Date: 20051028
  Serious: Yes (Other)
  Sender: FDA-Public Use
  Company Number: 200512619US

PATIENT
  Sex: Male

DRUGS (2)
  1. KETEK [Suspect]
     Dosage: DOSE: UNK
  2. ATIVAN [Suspect]
     Dosage: DOSE: UNK

REACTIONS (3)
  - CEREBROVASCULAR ACCIDENT [None]
  - DRUG INTERACTION [None]
  - OVERDOSE [None]
